FAERS Safety Report 6945393-6 (Version None)
Quarter: 2010Q3

REPORT INFORMATION
  Report Type: 
  Country: None (occurrence: None)
  Receive Date: 20100827
  Receipt Date: 20100818
  Transmission Date: 20110219
  Serious: Yes (Hospitalization)
  Sender: FDA-Public Use
  Company Number: DE-ROCHE-711401

PATIENT
  Sex: Female
  Weight: 77 kg

DRUGS (6)
  1. BEVACIZUMAB [Suspect]
     Indication: BRONCHIAL CARCINOMA
     Dosage: 4 CYCLES BEFORE EVENT OCCURRED
     Route: 042
     Dates: start: 20100318, end: 20100525
  2. BEVACIZUMAB [Suspect]
     Dosage: 5TH CYCLE
     Route: 042
     Dates: start: 20100702, end: 20100702
  3. CARBOPLATIN [Concomitant]
     Indication: BRONCHIAL CARCINOMA
     Dosage: 4 CYCLES, 300 MG/M2
     Route: 042
     Dates: start: 20100318, end: 20100525
  4. PACLITAXEL [Concomitant]
     Indication: BRONCHIAL CARCINOMA
     Dosage: 4 CYCLES, 200 MG/M2
     Route: 042
     Dates: start: 20100318, end: 20100525
  5. SPIRIVA [Concomitant]
     Indication: CHRONIC OBSTRUCTIVE PULMONARY DISEASE
     Route: 055
     Dates: start: 20100301
  6. FORADIL [Concomitant]
     Indication: CHRONIC OBSTRUCTIVE PULMONARY DISEASE
     Route: 055
     Dates: start: 20100301

REACTIONS (2)
  - FISTULA [None]
  - PNEUMOPERICARDIUM [None]
